FAERS Safety Report 6326707-7 (Version None)
Quarter: 2009Q3

REPORT INFORMATION
  Report Type: 
  Country: None (occurrence: None)
  Receive Date: 20090825
  Receipt Date: 20090814
  Transmission Date: 20100115
  Serious: Yes (Other)
  Sender: FDA-Public Use
  Company Number: PHEH2009US06936

PATIENT
  Sex: Female
  Weight: 61.224 kg

DRUGS (5)
  1. RECLAST [Suspect]
     Indication: OSTEOPOROSIS
     Dosage: UNK, YEARLY
     Dates: start: 20081101
  2. RECLAST [Suspect]
     Dosage: UNK, YEARLY
     Dates: start: 20090204
  3. ASPIRIN [Concomitant]
     Dosage: UNK
  4. SPIRIVA [Concomitant]
     Dosage: UNK
  5. ZANTAC [Concomitant]
     Dosage: UNK, PRN

REACTIONS (4)
  - BURNING SENSATION [None]
  - HYPOAESTHESIA [None]
  - PAIN IN EXTREMITY [None]
  - SPINAL COLUMN STENOSIS [None]
